FAERS Safety Report 16088097 (Version 1)
Quarter: 2019Q1

REPORT INFORMATION
  Report Type: Spontaneous
  Country: US (occurrence: US)
  Receive Date: 20190319
  Receipt Date: 20190319
  Transmission Date: 20190418
  Serious: Yes (Other)
  Sender: FDA-Public Use
  Company Number: US-ACCORD-113372

PATIENT
  Sex: Male

DRUGS (1)
  1. CLONAZEPAM ACCORD [Suspect]
     Active Substance: CLONAZEPAM
     Indication: SEIZURE
     Dosage: STRENGTH: 0.5 MG

REACTIONS (4)
  - Nervousness [Unknown]
  - Seizure [Unknown]
  - Condition aggravated [Unknown]
  - Product substitution issue [Unknown]
